FAERS Safety Report 5848685-7 (Version None)
Quarter: 2008Q3

REPORT INFORMATION
  Report Type: 
  Country: None (occurrence: None)
  Receive Date: 20080814
  Receipt Date: 20080731
  Transmission Date: 20090109
  Serious: Yes (Hospitalization)
  Sender: FDA-Public Use
  Company Number: 236559J08USA

PATIENT
  Age: 67 Year
  Sex: Female
  Weight: 63.5036 kg

DRUGS (7)
  1. REBIF [Suspect]
     Indication: MULTIPLE SCLEROSIS
     Dosage: 44 MCG, 3 IN 1 WEEKS, SUBCUTANEOUS
     Route: 058
     Dates: start: 20080425, end: 20080721
  2. AMANTADINE HCL [Concomitant]
  3. OVER THE COUNTER DECONGESTANT (DECONGESTANTS AND ANTIALLERGICS) [Concomitant]
  4. LISINOPRIL [Concomitant]
  5. OVER THE COUNTER ANTIHISTAMINE (ANTIHISTAMINES) [Concomitant]
  6. LIPITOR [Concomitant]
  7. LORAZEPAM [Concomitant]

REACTIONS (6)
  - CONDITION AGGRAVATED [None]
  - DYSPNOEA [None]
  - HAEMORRHAGIC ANAEMIA [None]
  - IRON DEFICIENCY ANAEMIA [None]
  - PLATELET COUNT DECREASED [None]
  - WHITE BLOOD CELL COUNT DECREASED [None]
